FAERS Safety Report 6434754-X (Version None)
Quarter: 2009Q4

REPORT INFORMATION
  Report Type: 
  Country: None (occurrence: None)
  Receive Date: 20091110
  Receipt Date: 20091030
  Transmission Date: 20100525
  Serious: Yes (Other)
  Sender: FDA-Public Use
  Company Number: US-PFIZER INC-2009269545

PATIENT
  Sex: Female

DRUGS (2)
  1. ESTRING [Suspect]
     Indication: INFLAMMATION
     Dosage: UNK
     Dates: start: 20090904
  2. AZITHROMYCIN [Interacting]
     Indication: SINUSITIS
     Dosage: 250 MG, 1X/DAY
     Dates: start: 20090912

REACTIONS (2)
  - DRUG INTERACTION [None]
  - HAEMORRHAGE [None]
